FAERS Safety Report 7003430-7 (Version None)
Quarter: 2010Q3

REPORT INFORMATION
  Report Type: 
  Country: None (occurrence: None)
  Receive Date: 20100920
  Receipt Date: 20100908
  Transmission Date: 20110219
  Serious: Yes (Other)
  Sender: FDA-Public Use
  Company Number: US-PFIZER INC-2010114378

PATIENT
  Sex: Male

DRUGS (17)
  1. NITROSTAT [Suspect]
     Indication: ANGINA PECTORIS
     Dosage: 0.4 MG, AS NEEDED
     Route: 060
     Dates: start: 19971001
  2. ACETYLSALICYLIC ACID [Concomitant]
     Dosage: 325 MG, 1X/DAY
  3. VICODIN [Concomitant]
     Dosage: 500 MG, UNK
  4. COREG [Concomitant]
     Dosage: 25 MG, 2X/DAY
  5. ELAVIL [Concomitant]
     Dosage: 175 MG, 1X/DAY
  6. IBUPROFEN [Concomitant]
     Dosage: 800 MG, AS NEEDED
  7. LEVOXYL [Concomitant]
     Dosage: 0.125 MG, 1X/DAY
  8. LIBRIUM [Concomitant]
     Dosage: UNK, AS NEEDED
  9. LIPITOR [Concomitant]
     Dosage: 40 MG, 1X/DAY
  10. LISINOPRIL [Concomitant]
     Dosage: 10 MG, 1X/DAY
  11. ISOSORBIDE [Concomitant]
     Dosage: 60 MG, 1X/DAY
  12. ROBAXIN [Concomitant]
     Dosage: 375 MG, AS NEEDED
  13. NITROGLYCERIN [Concomitant]
     Dosage: 0.4 MG, AS NEEDED
  14. CALCIUM FERROUS CITRATE [Concomitant]
     Dosage: 500 MG, UNK
  15. VITAMINS NOS [Concomitant]
     Dosage: UNK
  16. LASIX [Concomitant]
     Dosage: 20 MG, 1X/DAY
  17. POTASSIUM [Concomitant]
     Dosage: 10 MEQ, 1X/DAY

REACTIONS (1)
  - ANGINA PECTORIS [None]
